FAERS Safety Report 4744871-8 (Version None)
Quarter: 2005Q3

REPORT INFORMATION
  Report Type: 
  Country: None (occurrence: None)
  Receive Date: 20050815
  Receipt Date: 20050812
  Transmission Date: 20060218
  Serious: Yes (Hospitalization)
  Sender: FDA-Public Use
  Company Number: FR-GLAXOSMITHKLINE-B0390512A

PATIENT
  Age: 55 Year
  Sex: Female

DRUGS (5)
  1. CLAMOXYL [Suspect]
     Indication: ANTIBIOTIC PROPHYLAXIS
     Dosage: 1G TWICE PER DAY
     Route: 048
     Dates: start: 20050530, end: 20050607
  2. IXEL [Concomitant]
     Indication: ANXIETY
     Route: 048
  3. ASPIRIN [Concomitant]
     Route: 048
     Dates: start: 20050530, end: 20050607
  4. ATHYMIL (MIANSERINE) [Concomitant]
     Indication: ANXIETY
     Dosage: 30MG PER DAY
     Route: 048
  5. LEXOMIL (BROMAZEPAM) [Concomitant]
     Indication: ANXIETY
     Route: 048

REACTIONS (8)
  - CHILLS [None]
  - CHOLESTASIS [None]
  - HEADACHE [None]
  - HEPATOCELLULAR DAMAGE [None]
  - MALAISE [None]
  - MENINGITIS [None]
  - PHOTOPHOBIA [None]
  - PYREXIA [None]
